FAERS Safety Report 10502203 (Version 2)
Quarter: 2015Q1

REPORT INFORMATION
  Report Type: Spontaneous
  Country: US (occurrence: US)
  Receive Date: 20141007
  Receipt Date: 20150202
  Transmission Date: 20150720
  Serious: Yes (Hospitalization)
  Sender: FDA-Public Use
  Company Number: US-PFIZER INC-2014273729

PATIENT
  Age: 57 Year
  Sex: Female

DRUGS (3)
  1. GENOTROPIN [Suspect]
     Active Substance: SOMATROPIN
     Indication: INSULIN-LIKE GROWTH FACTOR DECREASED
  2. GENOTROPIN [Suspect]
     Active Substance: SOMATROPIN
     Indication: DWARFISM
     Dosage: 0.2 MG, DAILY (INJECTION EVERY NIGHT)
     Route: 058
     Dates: start: 201107, end: 201405
  3. GENOTROPIN [Suspect]
     Active Substance: SOMATROPIN
     Indication: PAIN

REACTIONS (1)
  - Laboratory test abnormal [Recovered/Resolved]
